FAERS Safety Report 5777711-9 (Version None)
Quarter: 2008Q2

REPORT INFORMATION
  Report Type: 
  Country: None (occurrence: None)
  Receive Date: 20080618
  Receipt Date: 20080530
  Transmission Date: 20081010
  Serious: No
  Sender: FDA-Public Use
  Company Number: US-BOEHRINGER INGELHEIM GMBH, GERMANY-2008-BP-06944BP

PATIENT
  Sex: Female
  Weight: 67 kg

DRUGS (6)
  1. ZANTAC 75 [Suspect]
     Indication: GASTRIC PH DECREASED
     Route: 048
     Dates: start: 20080428, end: 20080502
  2. ZANTAC 75 [Suspect]
     Indication: GASTROOESOPHAGEAL REFLUX DISEASE
  3. TEGRETOL [Concomitant]
  4. PLAVIX [Concomitant]
  5. TOPROL-XL [Concomitant]
  6. CARAFATE SULFATE [Concomitant]
     Indication: HIATUS HERNIA

REACTIONS (4)
  - ABDOMINAL DISCOMFORT [None]
  - BURNING SENSATION [None]
  - DIZZINESS [None]
  - HEADACHE [None]
